FAERS Safety Report 16398375 (Version 1)
Quarter: 2019Q2

REPORT INFORMATION
  Report Type: Spontaneous
  Country: GB (occurrence: GB)
  Receive Date: 20190606
  Receipt Date: 20190606
  Transmission Date: 20190711
  Serious: Yes (Disabling, Other)
  Sender: FDA-Public Use
  Company Number: GB-PFIZER INC-2019235677

PATIENT
  Age: 69 Year
  Sex: Female
  Weight: 81.18 kg

DRUGS (9)
  1. NEURONTIN [Suspect]
     Active Substance: GABAPENTIN
     Dosage: 3 DF, 1X/DAY
     Route: 048
     Dates: start: 2019, end: 2019
  2. OMEPRAZOLE. [Concomitant]
     Active Substance: OMEPRAZOLE
  3. IBUPROFEN. [Concomitant]
     Active Substance: IBUPROFEN
     Indication: PAIN
     Dosage: UNK
  4. NEURONTIN [Suspect]
     Active Substance: GABAPENTIN
     Dosage: 1 DF, 1X/DAY
     Route: 048
     Dates: start: 201904, end: 20190423
  5. NEURONTIN [Suspect]
     Active Substance: GABAPENTIN
     Indication: PAIN IN EXTREMITY
     Dosage: 1 DF, 1X/DAY
     Route: 048
     Dates: start: 20190404, end: 201904
  6. LORATADINE. [Concomitant]
     Active Substance: LORATADINE
  7. MORPHINE [Concomitant]
     Active Substance: MORPHINE
     Dosage: UNK
     Dates: end: 20190403
  8. CODEINE [Concomitant]
     Active Substance: CODEINE
     Dosage: UNK
     Dates: end: 20190403
  9. PARACETAMOL [Concomitant]
     Active Substance: ACETAMINOPHEN
     Indication: PAIN

REACTIONS (7)
  - Balance disorder [Recovering/Resolving]
  - Hallucination, visual [Recovering/Resolving]
  - Diarrhoea [Recovering/Resolving]
  - Lichen sclerosus [Recovering/Resolving]
  - Tinnitus [Recovering/Resolving]
  - Decreased appetite [Recovering/Resolving]
  - Nausea [Recovering/Resolving]

NARRATIVE: CASE EVENT DATE: 20190414
